FAERS Safety Report 12708993 (Version 2)
Quarter: 2016Q3

REPORT INFORMATION
  Report Type: Spontaneous
  Country: US (occurrence: US)
  Receive Date: 20160901
  Receipt Date: 20160927
  Transmission Date: 20161109
  Serious: No
  Sender: FDA-Public Use
  Company Number: US-JAZZ-2016-US-008584

PATIENT
  Sex: Female

DRUGS (22)
  1. XYREM [Suspect]
     Active Substance: SODIUM OXYBATE
     Dosage: 4.5 G, BID
     Route: 048
     Dates: start: 201210
  2. DHEA [Concomitant]
     Active Substance: PRASTERONE
  3. MAGNESIUM GLUCONATE [Concomitant]
     Active Substance: MAGNESIUM GLUCONATE
  4. VITAMIN D [Concomitant]
     Active Substance: CHOLECALCIFEROL
  5. XYREM [Suspect]
     Active Substance: SODIUM OXYBATE
     Indication: NARCOLEPSY
     Dosage: 3 G, BID
     Route: 048
     Dates: start: 201205, end: 201206
  6. CALCIUM [Concomitant]
     Active Substance: CALCIUM
  7. NUVIGIL [Concomitant]
     Active Substance: ARMODAFINIL
  8. ACCUTANE [Concomitant]
     Active Substance: ISOTRETINOIN
  9. FISH OIL CONCENTRATE [Concomitant]
  10. VITAMIN B COMPLEX [Concomitant]
     Active Substance: CYANOCOBALAMIN\DEXPANTHENOL\NIACINAMIDE\PYRIDOXINE HYDROCHLORIDE\RIBOFLAVIN 5^-PHOSPHATE SODIUM\THIAMINE HYDROCHLORIDE\VITAMIN B COMPLEX
  11. XYREM [Suspect]
     Active Substance: SODIUM OXYBATE
     Indication: CATAPLEXY
     Dosage: 3.75 G, BID
     Route: 048
     Dates: start: 201206, end: 201210
  12. BIOTIN [Concomitant]
     Active Substance: BIOTIN
  13. SPIRONOLACTONE. [Concomitant]
     Active Substance: SPIRONOLACTONE
  14. CLARAVIS [Concomitant]
     Active Substance: ISOTRETINOIN
  15. MULTIVITAMINS [Concomitant]
     Active Substance: VITAMINS
  16. HYDROCHLOROTHIAZIDE. [Concomitant]
     Active Substance: HYDROCHLOROTHIAZIDE
  17. MINOCYCLINE HCL [Concomitant]
     Active Substance: MINOCYCLINE HYDROCHLORIDE
  18. PROMETRIUM [Concomitant]
     Active Substance: PROGESTERONE
  19. LEVOTHYROXINE. [Concomitant]
     Active Substance: LEVOTHYROXINE
  20. TRIIODOTHYRONINE [Concomitant]
     Active Substance: LIOTHYRONINE SODIUM
  21. CONCERTA [Concomitant]
     Active Substance: METHYLPHENIDATE HYDROCHLORIDE
  22. METHYLPHENIDATE. [Concomitant]
     Active Substance: METHYLPHENIDATE

REACTIONS (11)
  - Gait disturbance [Unknown]
  - Discomfort [Unknown]
  - Unevaluable event [Unknown]
  - Dizziness [Unknown]
  - Acne [Unknown]
  - Muscular weakness [Unknown]
  - Vertigo [Unknown]
  - Head discomfort [Unknown]
  - Headache [Unknown]
  - Malaise [Unknown]
  - Screaming [Unknown]
